FAERS Safety Report 5440684-2 (Version None)
Quarter: 2007Q3

REPORT INFORMATION
  Report Type: 
  Country: None (occurrence: None)
  Receive Date: 20070831
  Receipt Date: 20070815
  Transmission Date: 20080115
  Serious: No
  Sender: FDA-Public Use
  Company Number: US-BOEHRINGER INGELHEIM PHARMACEUTICALS, INC.-2007-BP-06171BP

PATIENT
  Sex: Female

DRUGS (6)
  1. MOBIC [Suspect]
     Indication: BACK PAIN
     Route: 048
     Dates: start: 20060801, end: 20070430
  2. MOBIC [Suspect]
     Indication: BONE PAIN
  3. MOBIC [Suspect]
     Indication: MOBILITY DECREASED
  4. ESTRADIOL [Concomitant]
  5. PROGESTERONE [Concomitant]
  6. TESTOSTERONE [Concomitant]

REACTIONS (4)
  - BLINDNESS [None]
  - BLOOD PRESSURE INCREASED [None]
  - HEADACHE [None]
  - WEIGHT INCREASED [None]
